FAERS Safety Report 5123559-8 (Version None)
Quarter: 2006Q3

REPORT INFORMATION
  Report Type: 
  Country: None (occurrence: None)
  Receive Date: 20060801
  Receipt Date: 20060208
  Transmission Date: 20061208
  Serious: Yes (Other)
  Sender: FDA-Public Use
  Company Number: 2006019504

PATIENT
  Sex: Male

DRUGS (1)
  1. CAMPTOSAR [Suspect]
     Indication: ILL-DEFINED DISORDER
     Dates: start: 20060201

REACTIONS (3)
  - CHILLS [None]
  - PLATELET COUNT DECREASED [None]
  - TREMOR [None]
